FAERS Safety Report 17080087 (Version 1)
Quarter: 2019Q4

REPORT INFORMATION
  Report Type: Other
  Country: GB (occurrence: GB)
  Receive Date: 20191127
  Receipt Date: 20191127
  Transmission Date: 20200122
  Serious: Yes (Other)
  Sender: FDA-Public Use
  Company Number: GB-DEXPHARM-20191029

PATIENT
  Age: 89 Year
  Sex: Male

DRUGS (15)
  1. LEVOTHYROXINE. [Concomitant]
     Active Substance: LEVOTHYROXINE
     Dosage: 50 MCG, IN THE MORNING
  2. LAXIDO ORANGE [Concomitant]
     Dosage: ONE TWICE A DAY
  3. PARACET [Concomitant]
     Active Substance: ACETAMINOPHEN
     Dosage: TWO 4 TIMES A DAY
  4. ALLOPURINOL. [Concomitant]
     Active Substance: ALLOPURINOL
     Dosage: ONE IN THE MORNING
  5. LACTULOSE. [Concomitant]
     Active Substance: LACTULOSE
     Dosage: 3-5ML TWICE A DAY, AS NEEDED
  6. VENLAFAXINE [Suspect]
     Active Substance: VENLAFAXINE HYDROCHLORIDE
     Dosage: 75MG ONE IN MORNING AND TWO AT NIGHT
  7. CLOPIDOGREL [Concomitant]
     Active Substance: CLOPIDOGREL BISULFATE
     Dosage: 75 MG, ONE IN THE MORNING
  8. TAMSULOSIN [Suspect]
     Active Substance: TAMSULOSIN
     Dosage: 400MCG, ONE IN THE MORNING
  9. METFORMIN [Concomitant]
     Active Substance: METFORMIN HYDROCHLORIDE
     Dosage: 500 MG, ONE 3 TIMES A DAY
  10. DIAZEPAM. [Suspect]
     Active Substance: DIAZEPAM
     Dosage: 2 MG, HALF TAB 4 TIMES A DAY
  11. QUETIAPINE. [Suspect]
     Active Substance: QUETIAPINE
     Dosage: 150 MG, ONE AT NIGHT
  12. LANSOPRAZOLE. [Concomitant]
     Active Substance: LANSOPRAZOLE
     Dosage: 15 MG, IN THE MORNING
  13. MEMANTINE. [Suspect]
     Active Substance: MEMANTINE
     Dosage: 20 MG, ONE IN THE MORNING
  14. MIRTAZAPINE. [Suspect]
     Active Substance: MIRTAZAPINE
     Dosage: 45 MG, ONE AT NIGHT
  15. SIMVASTATIN. [Concomitant]
     Active Substance: SIMVASTATIN
     Dosage: 20MG, ONE AT NIGHT

REACTIONS (2)
  - Fall [Unknown]
  - Tremor [Unknown]
